FAERS Safety Report 8249180-0 (Version None)
Quarter: 2012Q1

REPORT INFORMATION
  Report Type: 
  Country: None (occurrence: None)
  Receive Date: 20120314
  Receipt Date: 20120229
  Transmission Date: 20120608
  Serious: Yes (Hospitalization)
  Sender: FDA-Public Use
  Company Number: 2012031440

PATIENT
  Age: 54 Year
  Sex: Female
  Weight: 72.5755 kg

DRUGS (7)
  1. ZEMAIRA [Suspect]
     Indication: ALPHA-1 ANTI-TRYPSIN DEFICIENCY
     Dosage: 60 MG/KG 1X/WEEK, 1045 MG/VIAL; 0.08 ML; PER KG PER MIN (5.8 ML PER MIN), INTRAVENOUS (NOT OTHERWISE
     Route: 042
     Dates: start: 20120222, end: 20120222
  2. TRAZODONE HCL [Concomitant]
  3. BENADRYL [Concomitant]
  4. FLUOXETINE [Concomitant]
  5. SODIUM CHLORIDE [Concomitant]
  6. MULTI-VITAMIN [Concomitant]
  7. LAMICTAL [Concomitant]

REACTIONS (1)
  - HOSPITALISATION [None]
